FAERS Safety Report 4691974-2 (Version None)
Quarter: 2005Q2

REPORT INFORMATION
  Report Type: 
  Country: None (occurrence: None)
  Receive Date: 20050608
  Receipt Date: 20041019
  Transmission Date: 20051028
  Serious: Yes (Other)
  Sender: FDA-Public Use
  Company Number: 383867

PATIENT

DRUGS (2)
  1. ACCUTANE [Suspect]
     Indication: DRUG USE FOR UNKNOWN INDICATION
     Dates: start: 20020502, end: 20021015
  2. DRUG UNKNOWN (GENERIC COMPONENT(S) UNKNOWN) [Concomitant]

REACTIONS (1)
  - ABORTION INDUCED [None]
